FAERS Safety Report 5846641-6 (Version None)
Quarter: 2008Q3

REPORT INFORMATION
  Report Type: 
  Country: None (occurrence: None)
  Receive Date: 20080815
  Receipt Date: 20080808
  Transmission Date: 20090109
  Serious: Yes (Hospitalization)
  Sender: FDA-Public Use
  Company Number: A0742884A

PATIENT
  Age: 55 Year
  Sex: Male
  Weight: 63 kg

DRUGS (3)
  1. AMOXICILLIN + CLAVULANATE POTASSIUM [Suspect]
     Indication: DRUG USE FOR UNKNOWN INDICATION
     Dosage: 875MG PER DAY
     Route: 048
  2. FLONASE [Concomitant]
     Route: 045
  3. PANTOPRAZOLE SODIUM [Concomitant]

REACTIONS (8)
  - ALANINE AMINOTRANSFERASE INCREASED [None]
  - ASPARTATE AMINOTRANSFERASE INCREASED [None]
  - BLOOD ALKALINE PHOSPHATASE INCREASED [None]
  - BLOOD BILIRUBIN INCREASED [None]
  - GAMMA-GLUTAMYLTRANSFERASE INCREASED [None]
  - HEPATITIS CHOLESTATIC [None]
  - JAUNDICE CHOLESTATIC [None]
  - PRURITUS [None]
